FAERS Safety Report 4632938-4 (Version None)
Quarter: 2005Q2

REPORT INFORMATION
  Report Type: 
  Country: None (occurrence: None)
  Receive Date: 20050412
  Receipt Date: 20031002
  Transmission Date: 20051028
  Serious: Yes (Other)
  Sender: FDA-Public Use
  Company Number: US-MERCK-0310USA00341B1

PATIENT
  Age: -4 Day
  Sex: Female
  Weight: 2 kg

DRUGS (4)
  1. SINGULAIR [Suspect]
     Indication: ASTHMA
     Dates: start: 20030401
  2. CLINDAMYCIN [Concomitant]
     Dates: start: 20020918
  3. ERYTHROMYCIN [Concomitant]
     Dates: start: 20030918
  4. VITAMINS (UNSPECIFIED) [Concomitant]

REACTIONS (5)
  - BRADYCARDIA FOETAL [None]
  - DECREASED ACTIVITY [None]
  - DRUG EXPOSURE DURING PREGNANCY [None]
  - PREMATURE BABY [None]
  - UMBILICAL CORD ABNORMALITY [None]
